FAERS Safety Report 24061491 (Version 2)
Quarter: 2024Q3

REPORT INFORMATION
  Report Type: Spontaneous
  Country: IT (occurrence: IT)
  Receive Date: 20240708
  Receipt Date: 20240816
  Transmission Date: 20241017
  Serious: Yes (Other)
  Sender: BAYER
  Company Number: None

PATIENT
  Age: 47 Year
  Sex: Male
  Weight: 95 kg

DRUGS (1)
  1. CIPROFLOXACIN [Suspect]
     Active Substance: CIPROFLOXACIN
     Indication: Prostatitis
     Dosage: 250 MG, BID
     Route: 048
     Dates: start: 20230903, end: 20230917

REACTIONS (7)
  - Myalgia [Not Recovered/Not Resolved]
  - Gait disturbance [Recovering/Resolving]
  - Tinnitus [Not Recovered/Not Resolved]
  - Tendonitis [Not Recovered/Not Resolved]
  - Pelvic pain [Recovering/Resolving]
  - Anorectal discomfort [Recovering/Resolving]
  - Painful ejaculation [Recovering/Resolving]

NARRATIVE: CASE EVENT DATE: 20230920
